FAERS Safety Report 7073672-3 (Version None)
Quarter: 2010Q4

REPORT INFORMATION
  Report Type: 
  Country: None (occurrence: None)
  Receive Date: 20101029
  Receipt Date: 20100804
  Transmission Date: 20110411
  Serious: No
  Sender: FDA-Public Use
  Company Number: A0872748A

PATIENT
  Age: 79 Year
  Sex: Female

DRUGS (11)
  1. ADVAIR DISKUS 100/50 [Suspect]
     Indication: DYSPNOEA
     Dosage: 1PUFF TWICE PER DAY
     Route: 055
     Dates: start: 20100625
  2. WATER [Suspect]
  3. UNKNOWN MEDICATION [Concomitant]
  4. LEVOTHYROXINE [Concomitant]
  5. OMEPRAZOLE [Concomitant]
  6. VESICARE [Concomitant]
  7. METFORMIN [Concomitant]
  8. ASPIRIN [Concomitant]
  9. FISH OIL [Concomitant]
  10. UNKNOWN MEDICATION [Concomitant]
  11. OXYGEN [Concomitant]

REACTIONS (1)
  - HAEMOPTYSIS [None]
